FAERS Safety Report 6119761-9 (Version None)
Quarter: 2009Q1

REPORT INFORMATION
  Report Type: 
  Country: None (occurrence: None)
  Receive Date: 20090311
  Receipt Date: 20090227
  Transmission Date: 20090719
  Serious: Yes (Hospitalization)
  Sender: FDA-Public Use
  Company Number: 005691

PATIENT
  Sex: Female

DRUGS (3)
  1. CILOSTAZOL [Suspect]
  2. ASPIRIN [Suspect]
     Dosage: 200 MG, DAILY DOSE, ORAL
     Route: 048
  3. CLOPIDOGREL [Suspect]
     Dosage: 75 MG; DAILY DOSE; ORAL
     Route: 048

REACTIONS (1)
  - CHEST PAIN [None]
